FAERS Safety Report 11328604 (Version 1)
Quarter: 2015Q3

REPORT INFORMATION
  Report Type: Spontaneous
  Country: US (occurrence: US)
  Receive Date: 20150731
  Receipt Date: 20150731
  Transmission Date: 20151125
  Serious: No
  Sender: FDA-Public Use
  Company Number: US-TEVA-581928USA

PATIENT
  Age: 49 Year
  Sex: Male
  Weight: 90.8 kg

DRUGS (2)
  1. PROAIR HFA [Suspect]
     Active Substance: ALBUTEROL SULFATE
     Indication: ASTHMA
     Route: 055
     Dates: start: 2012
  2. PULMICORT RESPULES [Concomitant]
     Active Substance: BUDESONIDE
     Indication: ASTHMA

REACTIONS (1)
  - Dyspnoea [Not Recovered/Not Resolved]
